FAERS Safety Report 6726403-8 (Version None)
Quarter: 2010Q2

REPORT INFORMATION
  Report Type: 
  Country: None (occurrence: None)
  Receive Date: 20100514
  Receipt Date: 20100507
  Transmission Date: 20101027
  Serious: Yes (Hospitalization)
  Sender: FDA-Public Use
  Company Number: B0652653A

PATIENT
  Sex: Female
  Weight: 41 kg

DRUGS (3)
  1. PAZOPANIB [Suspect]
     Indication: NEOPLASM
     Dosage: 400MG PER DAY
     Route: 048
     Dates: start: 20100428
  2. EPIRUBICIN [Suspect]
     Indication: NEOPLASM
     Dosage: 75MGM2 CYCLIC
     Route: 042
     Dates: start: 20100427
  3. FORTECORTIN [Concomitant]
     Indication: NAUSEA
     Dosage: 4MG PER DAY
     Route: 048
     Dates: start: 20100429, end: 20100429

REACTIONS (3)
  - COUGH [None]
  - FEBRILE NEUTROPENIA [None]
  - PYREXIA [None]
